FAERS Safety Report 22056570 (Version 1)
Quarter: 2023Q1

REPORT INFORMATION
  Report Type: Spontaneous
  Country: US (occurrence: US)
  Receive Date: 20230302
  Receipt Date: 20230302
  Transmission Date: 20230417
  Serious: No
  Sender: FDA-Public Use
  Company Number: US-NOVOPROD-1008511

PATIENT
  Sex: Male

DRUGS (1)
  1. VICTOZA [Suspect]
     Active Substance: LIRAGLUTIDE
     Indication: Weight control
     Dosage: 1.8 MG, QD
     Dates: start: 2021

REACTIONS (3)
  - Dysphonia [Unknown]
  - Thirst [Unknown]
  - Off label use [Unknown]

NARRATIVE: CASE EVENT DATE: 20210101
